FAERS Safety Report 18932396 (Version 2)
Quarter: 2021Q1

REPORT INFORMATION
  Report Type: Spontaneous
  Country: US (occurrence: US)
  Receive Date: 20210223
  Receipt Date: 20210331
  Transmission Date: 20210420
  Serious: Yes (Hospitalization, Other)
  Sender: FDA-Public Use
  Company Number: US-JNJFOC-20210234939

PATIENT
  Age: 8 Week
  Sex: Female
  Weight: 3.7 kg

DRUGS (4)
  1. PARACETAMOL [Suspect]
     Active Substance: ACETAMINOPHEN
     Indication: PAIN
  2. PARACETAMOL [Suspect]
     Active Substance: ACETAMINOPHEN
     Indication: RESTLESSNESS
     Route: 065
  3. PARACETAMOL [Suspect]
     Active Substance: ACETAMINOPHEN
     Indication: RESTLESSNESS
  4. PARACETAMOL [Suspect]
     Active Substance: ACETAMINOPHEN
     Indication: PAIN
     Dosage: TOTAL DOSE OF 173 MG/KG PER DAY
     Route: 065

REACTIONS (8)
  - Candida sepsis [Unknown]
  - Liver injury [Recovered/Resolved]
  - Renal impairment [Recovered/Resolved]
  - Encephalopathy [Not Recovered/Not Resolved]
  - Intellectual disability [Not Recovered/Not Resolved]
  - Toxicity to various agents [Recovering/Resolving]
  - Seizure [Recovered/Resolved]
  - Candida infection [Unknown]
